FAERS Safety Report 8459484 (Version 4)
Quarter: 2013Q2

REPORT INFORMATION
  Report Type: Spontaneous
  Country: US (occurrence: US)
  Receive Date: 20120314
  Receipt Date: 20130502
  Transmission Date: 20140414
  Serious: No
  Sender: FDA-Public Use
  Company Number: US-ASTRAZENECA-2012SE06048

PATIENT
  Age: 69 Year
  Sex: Male

DRUGS (4)
  1. TOPROL XL [Suspect]
     Indication: CAROTID ARTERY OCCLUSION
     Route: 048
  2. TOPROL XL [Suspect]
     Indication: CAROTID ARTERY OCCLUSION
     Dosage: GENERIC
     Route: 048
  3. PLAVIX [Suspect]
     Indication: CAROTID ARTERY OCCLUSION
     Route: 065
  4. LIPITOR [Concomitant]

REACTIONS (12)
  - Irritable bowel syndrome [Unknown]
  - Pain [Unknown]
  - Hypertension [Unknown]
  - Gastrooesophageal reflux disease [Unknown]
  - Tooth loss [Unknown]
  - Urticaria [Unknown]
  - Rash [Unknown]
  - Abdominal discomfort [Unknown]
  - Drug dose omission [Unknown]
  - Therapeutic response unexpected [Unknown]
  - Off label use [Unknown]
  - Drug ineffective for unapproved indication [Unknown]
